FAERS Safety Report 6481601-6 (Version None)
Quarter: 2009Q4

REPORT INFORMATION
  Report Type: 
  Country: None (occurrence: None)
  Receive Date: 20091208
  Receipt Date: 20091201
  Transmission Date: 20100525
  Serious: Yes (Hospitalization)
  Sender: FDA-Public Use
  Company Number: BR-ROCHE-669130

PATIENT
  Sex: Male
  Weight: 56.8 kg

DRUGS (9)
  1. BEVACIZUMAB [Suspect]
     Dosage: MISSED DOSE ON 14 OCTOBER 2009.
     Route: 042
     Dates: start: 20090819
  2. BEVACIZUMAB [Suspect]
     Dosage: TO BE RE-INTRODUCED ON 11 NOVEMBER 2009.
     Route: 042
  3. TEMSIROLIMUS [Suspect]
     Dosage: MISSED DOSE ON 14 OCTOBER 2009.
     Route: 042
     Dates: start: 20090819
  4. TEMSIROLIMUS [Suspect]
     Route: 042
     Dates: start: 20091021
  5. METFORMIN HCL [Concomitant]
     Dates: start: 20040101
  6. ENALAPRIL [Concomitant]
     Indication: HYPERTENSION
     Dates: start: 20040101
  7. ATENOLOL [Concomitant]
     Indication: HYPERTENSION
     Dates: start: 20040101
  8. HYDROCHLOROTHIAZIDE [Concomitant]
     Indication: HYPERTENSION
     Dates: start: 20040101
  9. PARACETAMOL [Concomitant]
     Dates: start: 20091015

REACTIONS (1)
  - GASTRITIS [None]
